FAERS Safety Report 4298491-2 (Version None)
Quarter: 2004Q1

REPORT INFORMATION
  Report Type: 
  Country: None (occurrence: None)
  Receive Date: 20040218
  Receipt Date: 20031117
  Transmission Date: 20041129
  Serious: Yes (Other)
  Sender: FDA-Public Use
  Company Number: US-BRISTOL-MYERS SQUIBB COMPANY-12441317

PATIENT
  Age: 47 Year
  Sex: Female

DRUGS (10)
  1. STADOL [Suspect]
     Route: 045
  2. CARISOPRODOL [Concomitant]
  3. CHLORZOXAZONE [Concomitant]
  4. BUTALBITAL + CAFFEINE + ACETAMINOPHEN [Concomitant]
  5. LEVBID [Concomitant]
  6. ADIPEX [Concomitant]
  7. ALPRAZOLAM [Concomitant]
  8. METHOCARBAMOL [Concomitant]
  9. LORCET-HD [Concomitant]
  10. OXYCONTIN [Concomitant]

REACTIONS (1)
  - DEPENDENCE [None]
